FAERS Safety Report 5622809-9 (Version None)
Quarter: 2008Q1

REPORT INFORMATION
  Report Type: 
  Country: None (occurrence: None)
  Receive Date: 20080212
  Receipt Date: 20080208
  Transmission Date: 20080703
  Serious: Yes (Death, Life-Threatening, Hospitalization)
  Sender: FDA-Public Use
  Company Number: JP-BRISTOL-MYERS SQUIBB COMPANY-14057913

PATIENT
  Age: 67 Year
  Sex: Male

DRUGS (1)
  1. TAXOL [Suspect]
     Indication: GASTRIC CANCER
     Dosage: DRUG WAS ADMINISTERED ON 15TH + 22ND JAN2008 (2 DAYS)
     Route: 041
     Dates: start: 20080115, end: 20080122

REACTIONS (5)
  - BONE MARROW FAILURE [None]
  - DISSEMINATED INTRAVASCULAR COAGULATION [None]
  - HEPATIC FUNCTION ABNORMAL [None]
  - PANCYTOPENIA [None]
  - RENAL IMPAIRMENT [None]
